FAERS Safety Report 13152220 (Version 1)
Quarter: 2017Q1

REPORT INFORMATION
  Report Type: Spontaneous
  Country: GB (occurrence: GB)
  Receive Date: 20170125
  Receipt Date: 20170125
  Transmission Date: 20170428
  Serious: Yes (Other)
  Sender: FDA-Public Use
  Company Number: GB-TEVA-732042ACC

PATIENT
  Age: 29 Year
  Sex: Male
  Weight: 88 kg

DRUGS (1)
  1. ACTAVIS GROUP SERTRALINE [Suspect]
     Active Substance: SERTRALINE HYDROCHLORIDE
     Indication: DEPRESSION
     Route: 048
     Dates: start: 20120101, end: 20160210

REACTIONS (5)
  - Loss of libido [Unknown]
  - Personal relationship issue [Unknown]
  - Major depression [Unknown]
  - Anxiety [Unknown]
  - Sexual dysfunction [Not Recovered/Not Resolved]

NARRATIVE: CASE EVENT DATE: 20160229
